FAERS Safety Report 14847894 (Version 1)
Quarter: 2018Q2

REPORT INFORMATION
  Report Type: Spontaneous
  Country: RU (occurrence: RU)
  Receive Date: 20180504
  Receipt Date: 20180504
  Transmission Date: 20180711
  Serious: Yes (Death, Other)
  Sender: FDA-Public Use
  Company Number: RU-JNJFOC-20180432098

PATIENT

DRUGS (1)
  1. IBRUTINIB [Suspect]
     Active Substance: IBRUTINIB
     Indication: CHRONIC LYMPHOCYTIC LEUKAEMIA
     Dosage: 417-420 MG
     Route: 048

REACTIONS (20)
  - Hepatic failure [Fatal]
  - Pneumonia [Recovered/Resolved]
  - Febrile neutropenia [Recovered/Resolved]
  - Hepatic failure [Unknown]
  - Petechiae [Unknown]
  - Atrial fibrillation [Unknown]
  - Arthralgia [Unknown]
  - Hypertension [Unknown]
  - Oesophageal ulcer [Unknown]
  - Epistaxis [Unknown]
  - Hepatitis C [Fatal]
  - Sepsis [Recovered/Resolved]
  - Dermatitis allergic [Unknown]
  - Lymphoma transformation [Fatal]
  - Autoimmune haemolytic anaemia [Unknown]
  - Pancreatic carcinoma [Fatal]
  - Haemorrhagic diathesis [Unknown]
  - Epstein-Barr virus infection [Unknown]
  - Haematotoxicity [Unknown]
  - Diarrhoea [Recovered/Resolved]
